FAERS Safety Report 4417729-1 (Version None)
Quarter: 2004Q3

REPORT INFORMATION
  Report Type: 
  Country: None (occurrence: None)
  Receive Date: 20040803
  Receipt Date: 20040720
  Transmission Date: 20050211
  Serious: Yes (Hospitalization)
  Sender: FDA-Public Use
  Company Number: 200402293

PATIENT
  Age: 67 Year
  Sex: Female

DRUGS (4)
  1. LUMIGAN [Suspect]
     Indication: INTRAOCULAR PRESSURE INCREASED
     Dosage: 2 DROP BID EYE
     Route: 047
     Dates: start: 20021001, end: 20040301
  2. ALPHAGAN [Concomitant]
  3. ASPIRIN [Concomitant]
  4. HYDROCHLOROTHIAZIDE [Concomitant]

REACTIONS (1)
  - UTERINE HAEMORRHAGE [None]
